FAERS Safety Report 5154985-9 (Version None)
Quarter: 2006Q4

REPORT INFORMATION
  Report Type: 
  Country: None (occurrence: None)
  Receive Date: 20061121
  Receipt Date: 20061109
  Transmission Date: 20070319
  Serious: Yes (Other)
  Sender: FDA-Public Use
  Company Number: IT-ELI_LILLY_AND_COMPANY-IT200611002247

PATIENT
  Age: 70 Year
  Sex: Female

DRUGS (2)
  1. HUMULIN 70/30 [Suspect]
     Indication: DIABETES MELLITUS
  2. HUMALOG [Concomitant]

REACTIONS (7)
  - AGITATION [None]
  - AMNESIA [None]
  - FRUSTRATION [None]
  - HYPERGLYCAEMIA [None]
  - MOVEMENT DISORDER [None]
  - SOMNOLENCE [None]
  - TREMOR [None]
